FAERS Safety Report 5573917-2 (Version None)
Quarter: 2007Q4

REPORT INFORMATION
  Report Type: 
  Country: None (occurrence: None)
  Receive Date: 20071220
  Receipt Date: 20071207
  Transmission Date: 20080405
  Serious: Yes (Other)
  Sender: FDA-Public Use
  Company Number: MC200700724

PATIENT
  Age: 75 Year
  Sex: Male
  Weight: 160 kg

DRUGS (1)
  1. ANGIOMAX [Suspect]
     Indication: CARDIAC PACEMAKER INSERTION
     Dosage: 250 MG, BOLUS, IV BOLUS
     Route: 040

REACTIONS (2)
  - DRUG ADMINISTRATION ERROR [None]
  - HAEMORRHAGE [None]
